FAERS Safety Report 5934257-2 (Version None)
Quarter: 2008Q4

REPORT INFORMATION
  Report Type: 
  Country: None (occurrence: None)
  Receive Date: 20081028
  Receipt Date: 20081028
  Transmission Date: 20090506
  Serious: No
  Sender: FDA-Public Use
  Company Number: None

PATIENT
  Sex: Male
  Weight: 61.6 kg

DRUGS (4)
  1. CAMPATH [Suspect]
     Dosage: 3 MG
  2. CYCLOPHOSPHAMIDE [Suspect]
     Dosage: 1120 MG
  3. PENTOSTATIN [Suspect]
     Dosage: 7 MG
  4. RITUXIMAB (MOAB C2B8 ANTI CD20, CHIMERIC) [Suspect]
     Dosage: 700 MG

REACTIONS (2)
  - HYPONATRAEMIA [None]
  - LYMPHOPENIA [None]
